FAERS Safety Report 6177374-7 (Version None)
Quarter: 2009Q2

REPORT INFORMATION
  Report Type: 
  Country: None (occurrence: None)
  Receive Date: 20090430
  Receipt Date: 20090430
  Transmission Date: 20091009
  Serious: Yes (Death)
  Sender: FDA-Public Use
  Company Number: None

PATIENT
  Sex: Female
  Weight: 54.4316 kg

DRUGS (2)
  1. KARIVA [Suspect]
     Indication: CONTRACEPTION
     Dosage: .15MG DAILY PO
     Route: 048
  2. VITAMINS [Concomitant]

REACTIONS (1)
  - PULMONARY EMBOLISM [None]
